FAERS Safety Report 6651575-3 (Version None)
Quarter: 2010Q1

REPORT INFORMATION
  Report Type: 
  Country: None (occurrence: None)
  Receive Date: 20100325
  Receipt Date: 20100318
  Transmission Date: 20100710
  Serious: Yes (Other)
  Sender: FDA-Public Use
  Company Number: B0642807A

PATIENT
  Sex: Female

DRUGS (3)
  1. TYVERB [Suspect]
     Indication: BREAST CANCER
     Route: 048
     Dates: start: 20080801
  2. CAPECITABINE [Concomitant]
  3. VALTREX [Concomitant]
     Dates: start: 20100120, end: 20100127

REACTIONS (2)
  - CELLULITIS [None]
  - SKIN FISSURES [None]
